FAERS Safety Report 8010745-2 (Version None)
Quarter: 2011Q4

REPORT INFORMATION
  Report Type: 
  Country: None (occurrence: None)
  Receive Date: 20111228
  Receipt Date: 20111228
  Transmission Date: 20120403
  Serious: Yes (Other)
  Sender: FDA-Public Use
  Company Number: CN-BAYER-2011-123590

PATIENT
  Age: 60 Year
  Sex: Female

DRUGS (4)
  1. ANTIHYPERTENSIVES [Suspect]
     Indication: TABLET PHYSICAL ISSUE
  2. BOSU [Concomitant]
     Indication: TABLET PHYSICAL ISSUE
  3. ASPIRIN [Suspect]
     Dosage: 1 DF, UNK
     Route: 048
     Dates: start: 20111221
  4. LOTENSIN [Concomitant]

REACTIONS (2)
  - PARAESTHESIA ORAL [None]
  - HAEMORRHOIDAL HAEMORRHAGE [None]
